FAERS Safety Report 14844855 (Version 1)
Quarter: 2018Q2

REPORT INFORMATION
  Report Type: Spontaneous
  Country: GB (occurrence: GB)
  Receive Date: 20180504
  Receipt Date: 20180504
  Transmission Date: 20180711
  Serious: Yes (Death)
  Sender: FDA-Public Use
  Company Number: GB-TEVA-2018-GB-887993

PATIENT
  Age: 48 Year
  Sex: Male

DRUGS (1)
  1. CAPECITABINE. [Suspect]
     Active Substance: CAPECITABINE
     Indication: CHEMOTHERAPY
     Route: 065

REACTIONS (5)
  - Upper respiratory tract infection [Fatal]
  - Musculoskeletal pain [Fatal]
  - Atrial fibrillation [Fatal]
  - Arteriospasm coronary [Fatal]
  - Myocardial infarction [Fatal]
